FAERS Safety Report 22238952 (Version 1)
Quarter: 2023Q2

REPORT INFORMATION
  Report Type: Spontaneous
  Country: MX (occurrence: None)
  Receive Date: 20230421
  Receipt Date: 20230421
  Transmission Date: 20230721
  Serious: Yes (Death)
  Sender: FDA-Public Use
  Company Number: MX-ROCHE-3335499

PATIENT
  Age: 64 Year
  Sex: Female
  Weight: 74 kg

DRUGS (4)
  1. KADCYLA [Suspect]
     Active Substance: ADO-TRASTUZUMAB EMTANSINE
     Indication: Hormone receptor positive breast cancer
     Route: 042
     Dates: start: 202206, end: 202303
  2. TRASTUZUMAB [Suspect]
     Active Substance: TRASTUZUMAB
     Indication: Breast cancer
     Route: 042
     Dates: start: 202012, end: 202109
  3. PERTUZUMAB [Suspect]
     Active Substance: PERTUZUMAB
     Indication: Breast cancer
     Route: 042
     Dates: start: 202103, end: 202109
  4. LAPATINIB [Concomitant]
     Active Substance: LAPATINIB

REACTIONS (4)
  - Pneumonia [Fatal]
  - Coma [Fatal]
  - Hypertension [Not Recovered/Not Resolved]
  - Immune system disorder [Not Recovered/Not Resolved]

NARRATIVE: CASE EVENT DATE: 20230405
